FAERS Safety Report 22130945 (Version 1)
Quarter: 2023Q1

REPORT INFORMATION
  Report Type: Other
  Country: US (occurrence: None)
  Receive Date: 20230323
  Receipt Date: 20230323
  Transmission Date: 20230418
  Serious: Yes (Other)
  Sender: FDA-Public Use
  Company Number: US-ROCHE-3100176

PATIENT
  Age: 34 Year
  Sex: Female
  Weight: 99.2 kg

DRUGS (12)
  1. MYCOPHENOLATE MOFETIL [Suspect]
     Active Substance: MYCOPHENOLATE MOFETIL
     Indication: Renal transplant
     Dosage: DAILY DOSE: 500MG, 1DAY
     Route: 048
     Dates: start: 2013, end: 20220418
  2. COUMADIN [Concomitant]
     Active Substance: WARFARIN SODIUM
     Dosage: DAILY, 7MG ON M, T, W, TH,FRI, SAT/ 8MG ON SUNDAY ONLY
     Dates: end: 20220418
  3. PLAVIX [Concomitant]
     Active Substance: CLOPIDOGREL BISULFATE
     Dosage: DRUG USE UNTILL FIRST TRIMESTER
     Dates: start: 20220419
  4. IMURAN [Concomitant]
     Active Substance: AZATHIOPRINE
     Indication: Renal transplant
     Dates: start: 20220418
  5. IMURAN [Concomitant]
     Active Substance: AZATHIOPRINE
     Dates: start: 20220425
  6. ASPIRIN [Concomitant]
     Active Substance: ASPIRIN
     Dates: start: 20220419
  7. PROGRAF [Concomitant]
     Active Substance: TACROLIMUS
     Indication: Renal transplant
     Dosage: 3CAPSULES?PRIOR TO BECOMING PREGNANT
     Dates: start: 2013
  8. PREDNISONE [Concomitant]
     Active Substance: PREDNISONE
     Indication: Renal transplant
     Dosage: PRIOR TO BECOMING PREGNANT
     Dates: start: 2013
  9. PRILOSEC [Concomitant]
     Active Substance: OMEPRAZOLE MAGNESIUM
     Indication: Gastrooesophageal reflux disease
     Dosage: 1PILL, DAILY
  10. MACROBID [Concomitant]
     Active Substance: NITROFURANTOIN\NITROFURANTOIN MONOHYDRATE
     Dosage: 1 PILL, M,W,F
  11. CALCIUM CARBONATE [Concomitant]
     Active Substance: CALCIUM CARBONATE
     Dosage: TWICE A DAY(BID), AS REQUIRED (PRN)
  12. HEPARIN [Concomitant]
     Active Substance: HEPARIN SODIUM
     Dosage: 1-2 TIMES PER DAY DEPENDING ON BLOOD LEVELS
     Dates: start: 2022

REACTIONS (2)
  - Premature delivery [Unknown]
  - Maternal exposure during pregnancy [Unknown]

NARRATIVE: CASE EVENT DATE: 20220822
